FAERS Safety Report 9318085 (Version 1)
Quarter: 2013Q2

REPORT INFORMATION
  Report Type: Spontaneous
  Country: US (occurrence: US)
  Receive Date: 20130530
  Receipt Date: 20130530
  Transmission Date: 20140414
  Serious: No
  Sender: FDA-Public Use
  Company Number: US-GLAXOSMITHKLINE-A1004370A

PATIENT
  Age: 53 Year
  Sex: Female

DRUGS (2)
  1. VENTOLIN [Suspect]
     Indication: ASTHMA
     Route: 065
     Dates: start: 20121017
  2. NO CONCURRENT MEDICATION [Concomitant]

REACTIONS (3)
  - Anxiety [Recovering/Resolving]
  - Chest discomfort [Unknown]
  - Device ineffective [Recovered/Resolved]
